FAERS Safety Report 6563062-1 (Version None)
Quarter: 2010Q1

REPORT INFORMATION
  Report Type: 
  Country: None (occurrence: None)
  Receive Date: 20100130
  Receipt Date: 20091207
  Transmission Date: 20100710
  Serious: No
  Sender: FDA-Public Use
  Company Number: US-ABBOTT-09P-163-0612921-00

PATIENT
  Sex: Female
  Weight: 56.75 kg

DRUGS (9)
  1. HUMIRA [Suspect]
     Indication: CROHN'S DISEASE
     Dates: start: 20091107
  2. DIAZIDE [Concomitant]
     Indication: MENIERE'S DISEASE
     Dates: start: 20080101
  3. EFFEXOR [Concomitant]
     Indication: DEPRESSION
  4. BUSPAR [Concomitant]
     Indication: DRUG USE FOR UNKNOWN INDICATION
  5. TRAZODONE HCL [Concomitant]
     Indication: DRUG USE FOR UNKNOWN INDICATION
  6. NEXIUM [Concomitant]
     Indication: GASTROOESOPHAGEAL REFLUX DISEASE
  7. LIPITOR [Concomitant]
     Indication: DRUG USE FOR UNKNOWN INDICATION
  8. PENTASA [Concomitant]
     Indication: DRUG USE FOR UNKNOWN INDICATION
  9. IRON INFUSIONS [Concomitant]
     Indication: DRUG USE FOR UNKNOWN INDICATION
     Dates: start: 20091101

REACTIONS (3)
  - ABDOMINAL PAIN [None]
  - DEFAECATION URGENCY [None]
  - HAEMATOCHEZIA [None]
